FAERS Safety Report 20775220 (Version 1)
Quarter: 2022Q2

REPORT INFORMATION
  Report Type: Spontaneous
  Country: US (occurrence: US)
  Receive Date: 20220502
  Receipt Date: 20220502
  Transmission Date: 20220720
  Serious: Yes (Other)
  Sender: FDA-Public Use
  Company Number: US-BEH-2022144713

PATIENT
  Sex: Male

DRUGS (6)
  1. IDELVION [Suspect]
     Active Substance: COAGULATION FACTOR IX RECOMBINANT HUMAN
     Indication: Factor IX deficiency
     Dosage: 3000 INTERNATIONAL UNIT, QW
     Route: 042
  2. IDELVION [Suspect]
     Active Substance: COAGULATION FACTOR IX RECOMBINANT HUMAN
     Indication: Factor IX deficiency
     Dosage: 3000 INTERNATIONAL UNIT, QW
     Route: 042
  3. IDELVION [Suspect]
     Active Substance: COAGULATION FACTOR IX RECOMBINANT HUMAN
     Indication: Haemorrhage prophylaxis
     Dosage: SLOW IV PUSH EVERY 7 DAYS
     Route: 042
     Dates: start: 202203
  4. IDELVION [Suspect]
     Active Substance: COAGULATION FACTOR IX RECOMBINANT HUMAN
     Indication: Haemorrhage prophylaxis
     Dosage: SLOW IV PUSH EVERY 7 DAYS
     Route: 042
     Dates: start: 202203
  5. IDELVION [Suspect]
     Active Substance: COAGULATION FACTOR IX RECOMBINANT HUMAN
     Dosage: SLOW IV PUSH EVERY 7 DAYS
     Route: 042
     Dates: start: 202108
  6. IDELVION [Suspect]
     Active Substance: COAGULATION FACTOR IX RECOMBINANT HUMAN
     Dosage: SLOW IV PUSH EVERY 7 DAYS
     Route: 042
     Dates: start: 202108

REACTIONS (1)
  - Haemorrhage [Unknown]
